FAERS Safety Report 7904446-6 (Version None)
Quarter: 2011Q4

REPORT INFORMATION
  Report Type: 
  Country: None (occurrence: None)
  Receive Date: 20111109
  Receipt Date: 20111104
  Transmission Date: 20120403
  Serious: Yes (Hospitalization, Other)
  Sender: FDA-Public Use
  Company Number: US-ABBOTT-11P-163-0871900-00

PATIENT
  Sex: Male
  Weight: 74.91 kg

DRUGS (9)
  1. HUMIRA [Suspect]
     Indication: PSORIASIS
     Dates: start: 20080101, end: 20090101
  2. ASPIRIN [Concomitant]
     Indication: ANTICOAGULANT THERAPY
  3. LOSARTAN POTASSIUM [Concomitant]
     Indication: RENAL DISORDER
  4. HUMIRA [Suspect]
     Dates: start: 20100101, end: 20110101
  5. DOCUSATE [Concomitant]
     Indication: CONSTIPATION PROPHYLAXIS
  6. ATENOLOL [Concomitant]
     Indication: HYPERTENSION
  7. ALLOPURINOL [Concomitant]
     Indication: GOUT
  8. CLOBETASOL [Concomitant]
     Indication: PSORIASIS
  9. VITAMIN TAB [Concomitant]
     Indication: VITAMIN SUPPLEMENTATION

REACTIONS (10)
  - AORTIC ANEURYSM RUPTURE [None]
  - SKIN LESION [None]
  - RENAL DISORDER [None]
  - PYREXIA [None]
  - AORTIC ANEURYSM [None]
  - FOOT DEFORMITY [None]
  - MASTICATION DISORDER [None]
  - SKIN CANCER [None]
  - ANEURYSM [None]
  - PAIN [None]
